FAERS Safety Report 9477569 (Version 3)
Quarter: 2013Q4

REPORT INFORMATION
  Report Type: Spontaneous
  Country: JP (occurrence: JP)
  Receive Date: 20130827
  Receipt Date: 20131209
  Transmission Date: 20140711
  Serious: Yes (Other)
  Sender: FDA-Public Use
  Company Number: JP-009507513-1308JPN011097

PATIENT
  Age: 39 Year
  Sex: Female

DRUGS (2)
  1. BETAMETHASONE SODIUM PHOSPHATE [Suspect]
     Indication: MATERNAL THERAPY TO ENHANCE FOETAL LUNG MATURITY
     Dosage: 12 MG, QD
     Route: 030
     Dates: start: 20130806, end: 20130807
  2. RITODRINE [Suspect]
     Indication: THREATENED LABOUR
     Dosage: 200MC/D
     Dates: start: 20130806, end: 20130810

REACTIONS (4)
  - Hyperglycaemia [Recovering/Resolving]
  - Hepatic function abnormal [Recovering/Resolving]
  - Blood creatine phosphokinase increased [Recovering/Resolving]
  - Maternal exposure during pregnancy [Unknown]
